FAERS Safety Report 25422927 (Version 1)
Quarter: 2025Q2

REPORT INFORMATION
  Report Type: Spontaneous
  Country: US (occurrence: None)
  Receive Date: 20250610
  Receipt Date: 20250610
  Transmission Date: 20250717
  Serious: Yes (Life-Threatening, Hospitalization)
  Sender: FDA-CTU
  Company Number: None

PATIENT
  Age: 23 Year
  Sex: Male
  Weight: 72 kg

DRUGS (9)
  1. CITALOPRAM [Suspect]
     Active Substance: CITALOPRAM
     Indication: Anxiety
     Dosage: FREQUENCY : DAILY;?
     Route: 048
     Dates: start: 20181108, end: 20220724
  2. CITALOPRAM [Suspect]
     Active Substance: CITALOPRAM
     Indication: Depression
  3. CITALOPRAM [Suspect]
     Active Substance: CITALOPRAM
     Indication: Autism spectrum disorder
  4. WELLBUTRIN [Suspect]
     Active Substance: BUPROPION HYDROCHLORIDE
  5. GUANFACINE [Suspect]
     Active Substance: GUANFACINE
  6. ZINC [Concomitant]
     Active Substance: ZINC
  7. MAGNESIUM [Concomitant]
     Active Substance: MAGNESIUM
  8. vitamin d3+k2 [Concomitant]
  9. hormone protect [Concomitant]

REACTIONS (7)
  - Withdrawal syndrome [None]
  - Electric shock sensation [None]
  - Head injury [None]
  - Crying [None]
  - Loss of libido [None]
  - Sexual dysfunction [None]
  - Blood testosterone decreased [None]

NARRATIVE: CASE EVENT DATE: 20220724
